FAERS Safety Report 4861200-X (Version None)
Quarter: 2005Q4

REPORT INFORMATION
  Report Type: 
  Country: None (occurrence: None)
  Receive Date: 20051216
  Receipt Date: 20051123
  Transmission Date: 20060501
  Serious: Yes (Death)
  Sender: FDA-Public Use
  Company Number: 200510728BFR

PATIENT
  Age: 28 Year
  Sex: Male

DRUGS (9)
  1. CIPROFLOXACIN [Suspect]
     Indication: ABDOMINAL PAIN
     Dosage: 800 MG, TOTAL DAILY, INTRAVENOUS
     Route: 042
     Dates: start: 20031109
  2. CIPROFLOXACIN [Suspect]
     Indication: APPENDICITIS
     Dosage: 800 MG, TOTAL DAILY, INTRAVENOUS
     Route: 042
     Dates: start: 20031109
  3. PRO-DAFALGAN [Concomitant]
  4. VISCERALGINE [Concomitant]
  5. ERCEFURYL [Concomitant]
  6. DOLIPRANE [Concomitant]
  7. SPASFON [Concomitant]
  8. PERFALGAN [Concomitant]
  9. PROFENID [Concomitant]

REACTIONS (4)
  - CARDIAC FAILURE ACUTE [None]
  - MYOCARDITIS [None]
  - PULMONARY OEDEMA [None]
  - SUDDEN DEATH [None]
